FAERS Safety Report 12123140 (Version 5)
Quarter: 2016Q2

REPORT INFORMATION
  Report Type: Report from Study
  Country: GB (occurrence: GB)
  Receive Date: 20160227
  Receipt Date: 20160419
  Transmission Date: 20160815
  Serious: Yes (Hospitalization, Other)
  Sender: FDA-Public Use
  Company Number: GB-BRISTOL-MYERS SQUIBB COMPANY-BMS-2016-003196

PATIENT
  Sex: Male

DRUGS (1)
  1. NIVOLUMAB [Suspect]
     Active Substance: NIVOLUMAB
     Indication: LUNG NEOPLASM MALIGNANT
     Dosage: UNK
     Route: 065
     Dates: start: 20151214

REACTIONS (9)
  - Constipation [Recovered/Resolved]
  - Pruritus [Unknown]
  - Cough [Unknown]
  - Pulmonary thrombosis [Unknown]
  - Musculoskeletal pain [Recovering/Resolving]
  - Dysphagia [Unknown]
  - Diplopia [Unknown]
  - Tremor [Unknown]
  - Dyspnoea [Recovering/Resolving]
